FAERS Safety Report 10480653 (Version 1)
Quarter: 2014Q3

REPORT INFORMATION
  Report Type: Spontaneous
  Country: US (occurrence: None)
  Receive Date: 20140925
  Receipt Date: 20140925
  Transmission Date: 20150326
  Serious: Yes (Hospitalization, Other)
  Sender: FDA-Public Use
  Company Number: 2014NUEUSA00381

PATIENT
  Age: 52 Year
  Sex: Male

DRUGS (11)
  1. FENTANYL. [Concomitant]
     Active Substance: FENTANYL
  2. BACLOFEN. [Concomitant]
     Active Substance: BACLOFEN
  3. LYRICA [Concomitant]
     Active Substance: PREGABALIN
  4. NEOMYCIN (NEOMYCIN SULFATE) [Concomitant]
  5. PRAVACHOL (PRAVASTATIN SODIUM) [Concomitant]
  6. ATIVAN [Concomitant]
     Active Substance: LORAZEPAM
  7. RISPERDAL [Suspect]
     Active Substance: RISPERIDONE
     Indication: PRODUCT USED FOR UNKNOWN INDICATION
  8. NUEDEXTA [Suspect]
     Active Substance: DEXTROMETHORPHAN HYDROBROMIDE\QUINIDINE SULFATE
     Indication: AFFECT LABILITY
     Dosage: 1 CAP
     Dates: start: 20140829, end: 20140907
  9. LACTULOSE. [Concomitant]
     Active Substance: LACTULOSE
  10. COGENTIN (BENZATROPINE MESILATE) [Concomitant]
  11. MOBIC [Concomitant]
     Active Substance: MELOXICAM

REACTIONS (13)
  - Agitation [None]
  - Lethargy [None]
  - Respiratory distress [None]
  - Brain injury [None]
  - Incoherent [None]
  - Pressure of speech [None]
  - Cardiac disorder [None]
  - Urinary bladder haemorrhage [None]
  - Coma [None]
  - Conduction disorder [None]
  - Ventricular dysfunction [None]
  - Drug interaction [None]
  - Dizziness [None]

NARRATIVE: CASE EVENT DATE: 2014
